FAERS Safety Report 11888066 (Version 1)
Quarter: 2016Q1

REPORT INFORMATION
  Report Type: Spontaneous
  Country: US (occurrence: None)
  Receive Date: 20160104
  Receipt Date: 20160104
  Transmission Date: 20160526
  Serious: No
  Sender: FDA-Public Use
  Company Number: None

PATIENT
  Age: 66 Year
  Sex: Male

DRUGS (1)
  1. TEMODAR [Suspect]
     Active Substance: TEMOZOLOMIDE
     Indication: BRAIN NEOPLASM MALIGNANT
     Dosage: 360 MG, DAILY X5 DAY MONTH
     Route: 048
     Dates: start: 201508, end: 201512

REACTIONS (2)
  - Seizure [None]
  - Therapy cessation [None]

NARRATIVE: CASE EVENT DATE: 20151122
